FAERS Safety Report 20637383 (Version 14)
Quarter: 2025Q1

REPORT INFORMATION
  Report Type: Spontaneous
  Country: US (occurrence: US)
  Receive Date: 20220325
  Receipt Date: 20250314
  Transmission Date: 20250408
  Serious: Yes (Other)
  Sender: PFIZER
  Company Number: US-PFIZER INC-202100971469

PATIENT
  Age: 74 Year
  Sex: Female

DRUGS (22)
  1. XELJANZ [Suspect]
     Active Substance: TOFACITINIB CITRATE
     Indication: Rheumatoid arthritis
     Dosage: 5 MG, 1X/DAY
     Route: 048
  2. ATORVASTATIN [Concomitant]
     Active Substance: ATORVASTATIN
  3. BREO ELLIPTA [Concomitant]
     Active Substance: FLUTICASONE FUROATE\VILANTEROL TRIFENATATE
  4. CITALOPRAM [Concomitant]
     Active Substance: CITALOPRAM
  5. CLOBETASOL [Concomitant]
     Active Substance: CLOBETASOL
  6. CO Q 10 [UBIDECARENONE] [Concomitant]
  7. GLIMEPIRIDE [Concomitant]
     Active Substance: GLIMEPIRIDE
  8. HUMALOG [Concomitant]
     Active Substance: INSULIN LISPRO
  9. LEVOTHYROXINE [Concomitant]
     Active Substance: LEVOTHYROXINE
  10. IPRATROPIUM [Concomitant]
     Active Substance: IPRATROPIUM
  11. VITAMIN D3 [Concomitant]
     Active Substance: CHOLECALCIFEROL
  12. LORAZEPAM [Concomitant]
     Active Substance: LORAZEPAM
  13. APPLE CIDER VINEGAR [MALUS SPP. VINEGAR EXTRACT] [Concomitant]
  14. CRANBERRY [Concomitant]
     Active Substance: CRANBERRY
  15. CALCIUM [Concomitant]
     Active Substance: CALCIUM
  16. HYDROCODONE [Concomitant]
     Active Substance: HYDROCODONE
  17. LANTUS [Concomitant]
     Active Substance: INSULIN GLARGINE
  18. LOSARTAN [Concomitant]
     Active Substance: LOSARTAN
  19. METOPROLOL [Concomitant]
     Active Substance: METOPROLOL
  20. TYLENOL [Concomitant]
     Active Substance: ACETAMINOPHEN
  21. ALBUTEROL [Concomitant]
     Active Substance: ALBUTEROL
  22. ASPIRIN [Concomitant]
     Active Substance: ASPIRIN

REACTIONS (5)
  - Diabetes mellitus [Unknown]
  - Pain [Not Recovered/Not Resolved]
  - Hypoacusis [Not Recovered/Not Resolved]
  - Thinking abnormal [Unknown]
  - Off label use [Unknown]
